FAERS Safety Report 15327392 (Version 1)
Quarter: 2018Q3

REPORT INFORMATION
  Report Type: Spontaneous
  Country: US (occurrence: US)
  Receive Date: 20180828
  Receipt Date: 20180828
  Transmission Date: 20181010
  Serious: Yes (Other)
  Sender: FDA-Public Use
  Company Number: US-ALLERGAN-1755113US

PATIENT
  Sex: Female

DRUGS (3)
  1. OXAZEPAM. [Concomitant]
     Active Substance: OXAZEPAM
     Indication: NERVOUSNESS
  2. LEXAPRO [Suspect]
     Active Substance: ESCITALOPRAM OXALATE
     Indication: DEPRESSION
     Dosage: 10 MG, QD
     Route: 048
     Dates: start: 2013, end: 201709
  3. OXAZEPAM. [Concomitant]
     Active Substance: OXAZEPAM
     Indication: SLEEP DISORDER
     Dosage: UNK, UNKNOWN
     Route: 065

REACTIONS (13)
  - Fall [Unknown]
  - Contusion [Not Recovered/Not Resolved]
  - Aggression [Not Recovered/Not Resolved]
  - Nausea [Unknown]
  - Vision blurred [Unknown]
  - Speech disorder [Not Recovered/Not Resolved]
  - Asthenia [Not Recovered/Not Resolved]
  - Cardiac disorder [Recovered/Resolved]
  - Decreased appetite [Not Recovered/Not Resolved]
  - Suicidal ideation [Not Recovered/Not Resolved]
  - Mobility decreased [Not Recovered/Not Resolved]
  - Chest pain [Recovered/Resolved]
  - Tremor [Unknown]

NARRATIVE: CASE EVENT DATE: 2013
